FAERS Safety Report 5632544-9 (Version None)
Quarter: 2008Q1

REPORT INFORMATION
  Report Type: 
  Country: None (occurrence: None)
  Receive Date: 20080220
  Receipt Date: 20080208
  Transmission Date: 20080703
  Serious: Yes (Hospitalization, Other)
  Sender: FDA-Public Use
  Company Number: DE-PFIZER INC-2008005817

PATIENT
  Sex: Female
  Weight: 56 kg

DRUGS (5)
  1. LYRICA [Suspect]
     Indication: GENERALISED ANXIETY DISORDER
     Dosage: DAILY DOSE:150MG
     Route: 048
  2. SANDIMMUNE [Concomitant]
  3. COTRIM [Concomitant]
  4. FRAGMIN [Concomitant]
  5. ACYCLOVIR [Concomitant]

REACTIONS (2)
  - LYMPHOPENIA [None]
  - PANCYTOPENIA [None]
